FAERS Safety Report 10477668 (Version 1)
Quarter: 2014Q3

REPORT INFORMATION
  Report Type: Spontaneous
  Country: JP (occurrence: JP)
  Receive Date: 20140926
  Receipt Date: 20140926
  Transmission Date: 20150326
  Serious: Yes (Other)
  Sender: FDA-Public Use
  Company Number: JP-ASTRAZENECA-2014SE70442

PATIENT
  Age: 61 Year
  Sex: Male
  Weight: 78 kg

DRUGS (17)
  1. MORPHINE [Interacting]
     Active Substance: MORPHINE
     Indication: EPIDURAL ANALGESIA
     Route: 008
  2. MORPHINE [Interacting]
     Active Substance: MORPHINE
     Indication: EPIDURAL ANALGESIA
     Dosage: 0-0.14 MG/H
     Route: 008
  3. PILSICAINIDE [Interacting]
     Active Substance: PILSICAINIDE
     Indication: ATRIAL FIBRILLATION
  4. SUGAMADEX [Concomitant]
     Indication: MUSCLE RELAXANT THERAPY
  5. LIDOCAINE. [Suspect]
     Active Substance: LIDOCAINE
     Indication: EPIDURAL ANAESTHESIA
     Route: 008
  6. ENALAPRIL [Interacting]
     Active Substance: ENALAPRIL
     Indication: ATRIAL FIBRILLATION
  7. REMIFENTANIL [Interacting]
     Active Substance: REMIFENTANIL
     Indication: INDUCTION AND MAINTENANCE OF ANAESTHESIA
  8. PROPOFOL. [Interacting]
     Active Substance: PROPOFOL
     Indication: INDUCTION OF ANAESTHESIA
     Route: 042
  9. ROPIVACAINE [Interacting]
     Active Substance: ROPIVACAINE
     Indication: EPIDURAL ANAESTHESIA
     Dosage: 0-8 MG/H
     Route: 008
  10. FENTANYL. [Interacting]
     Active Substance: FENTANYL
     Indication: MAINTENANCE OF ANAESTHESIA
     Route: 042
  11. REMIFENTANIL [Interacting]
     Active Substance: REMIFENTANIL
     Indication: INDUCTION AND MAINTENANCE OF ANAESTHESIA
     Dosage: INDUCTION OF GENERAL ANAESTHESIA
  12. REMIFENTANIL [Interacting]
     Active Substance: REMIFENTANIL
     Indication: INDUCTION AND MAINTENANCE OF ANAESTHESIA
  13. ROCURONIUM [Concomitant]
     Active Substance: ROCURONIUM BROMIDE
     Indication: MUSCLE RELAXANT THERAPY
     Dosage: AT THE TIME OF INDUCTION OF ANAESTHESIA
  14. ROCURONIUM [Concomitant]
     Active Substance: ROCURONIUM BROMIDE
     Indication: MUSCLE RELAXANT THERAPY
  15. ROPIVACAINE [Interacting]
     Active Substance: ROPIVACAINE
     Indication: EPIDURAL ANAESTHESIA
     Route: 008
  16. CARVEDIOL [Interacting]
     Active Substance: CARVEDILOL
     Indication: ATRIAL FIBRILLATION
  17. DESFLURANE [Interacting]
     Active Substance: DESFLURANE
     Indication: MAINTENANCE OF ANAESTHESIA
     Route: 055

REACTIONS (3)
  - Atrial fibrillation [Recovered/Resolved]
  - Drug interaction [Recovered/Resolved]
  - Procedural hypotension [Recovered/Resolved]
